FAERS Safety Report 5745745-6 (Version None)
Quarter: 2008Q2

REPORT INFORMATION
  Report Type: 
  Country: None (occurrence: None)
  Receive Date: 20080521
  Receipt Date: 20080509
  Transmission Date: 20081010
  Serious: Yes (Death)
  Sender: FDA-Public Use
  Company Number: CA-PFIZER INC-2008041307

PATIENT
  Age: 3 Year
  Sex: Female

DRUGS (6)
  1. CLINDAMYCIN PHOSPHATE [Suspect]
     Indication: PNEUMONIA
     Dosage: DAILY DOSE:30MG/KG
     Route: 042
  2. AMOXICILLIN [Suspect]
     Indication: PNEUMONIA
  3. CEFUROXIME [Suspect]
     Indication: PNEUMONIA
     Dosage: DAILY DOSE:150MG/KG
     Route: 042
  4. CEFOTAXIME SODIUM [Suspect]
     Indication: PNEUMONIA
     Dosage: DAILY DOSE:100MG/KG
     Route: 042
  5. VANCOMYCIN [Suspect]
     Indication: PNEUMONIA
     Dosage: DAILY DOSE:40MG/KG
     Route: 042
  6. CIPROFLOXACIN HCL [Suspect]
     Indication: PNEUMONIA
     Dosage: DAILY DOSE:20MG/KG
     Route: 042

REACTIONS (2)
  - PNEUMONIA NECROTISING [None]
  - PULMONARY PNEUMATOCELE [None]
